FAERS Safety Report 17579618 (Version 2)
Quarter: 2020Q2

REPORT INFORMATION
  Report Type: Spontaneous
  Country: JP (occurrence: JP)
  Receive Date: 20200325
  Receipt Date: 20200402
  Transmission Date: 20200713
  Serious: Yes (Other)
  Sender: FDA-Public Use
  Company Number: NVSJ2020JP003694

PATIENT
  Age: 87 Year
  Sex: Female

DRUGS (3)
  1. RIFAMPICIN CAPSULES [Suspect]
     Active Substance: RIFAMPIN
     Indication: TUBERCULOSIS
     Dosage: 450 MG, QD
     Route: 048
  2. ESANBUTOL TABLETS [Suspect]
     Active Substance: ETHAMBUTOL HYDROCHLORIDE
     Indication: TUBERCULOSIS
     Dosage: 750 MG, QD
     Route: 048
  3. ISONIASID [Concomitant]
     Active Substance: ISONIAZID
     Indication: TUBERCULOSIS
     Dosage: 200 MG, UNK
     Route: 065

REACTIONS (1)
  - Immune reconstitution inflammatory syndrome associated tuberculosis [Unknown]
